FAERS Safety Report 12847678 (Version 1)
Quarter: 2016Q4

REPORT INFORMATION
  Report Type: Spontaneous
  Country: BR (occurrence: BR)
  Receive Date: 20161014
  Receipt Date: 20161014
  Transmission Date: 20170207
  Serious: Yes (Death, Hospitalization, Other)
  Sender: FDA-Public Use
  Company Number: BR-ASTELLAS-2016US040461

PATIENT
  Age: 14 Year
  Sex: Male

DRUGS (2)
  1. METHYLPREDNISOLONE. [Concomitant]
     Active Substance: METHYLPREDNISOLONE
     Indication: RENAL TRANSPLANT
     Dosage: UNK UNK, UNKNOWN FREQ.
     Route: 065
  2. TACROLIMUS. [Suspect]
     Active Substance: TACROLIMUS
     Indication: RENAL TRANSPLANT
     Dosage: UNK, UNKNOWN FREQ.
     Route: 065

REACTIONS (9)
  - Cerebral haemorrhage [Unknown]
  - Pyrexia [Unknown]
  - Brain death [Fatal]
  - Respiratory failure [Unknown]
  - Septic shock [Unknown]
  - Renal impairment [Unknown]
  - Drug level fluctuating [Unknown]
  - Disseminated intravascular coagulation [Unknown]
  - Histoplasmosis disseminated [Unknown]
